FAERS Safety Report 17175791 (Version 2)
Quarter: 2020Q1

REPORT INFORMATION
  Report Type: Spontaneous
  Country: SE (occurrence: SE)
  Receive Date: 20191219
  Receipt Date: 20200107
  Transmission Date: 20200409
  Serious: Yes (Hospitalization)
  Sender: FDA-Public Use
  Company Number: SE-ASTRAZENECA-2019SF80386

PATIENT
  Age: 73 Year
  Sex: Male

DRUGS (14)
  1. CIRCADIN [Suspect]
     Active Substance: MELATONIN
     Indication: PRODUCT USED FOR UNKNOWN INDICATION
     Route: 065
  2. MINIRIN [Suspect]
     Active Substance: DESMOPRESSIN ACETATE
     Dosage: 120 MICROGRAMS PER INHALATION, 1+1
     Route: 065
  3. IPRAMOL [Suspect]
     Active Substance: ALBUTEROL SULFATE\IPRATROPIUM BROMIDE
     Indication: PRODUCT USED FOR UNKNOWN INDICATION
     Route: 065
  4. OLANZAPINE. [Suspect]
     Active Substance: OLANZAPINE
     Indication: PRODUCT USED FOR UNKNOWN INDICATION
     Route: 065
  5. GLUCOSE [Suspect]
     Active Substance: DEXTROSE
     Dosage: 5, DAILY
     Route: 065
  6. ATIVAN [Suspect]
     Active Substance: LORAZEPAM
     Indication: PRODUCT USED FOR UNKNOWN INDICATION
     Dosage: 2.0MG UNKNOWN
     Route: 065
  7. QUETIAPINE. [Suspect]
     Active Substance: QUETIAPINE
     Dosage: 25 MG, 2+2+1
     Route: 065
  8. HALDOL [Suspect]
     Active Substance: HALOPERIDOL
     Indication: BIPOLAR I DISORDER
     Dosage: 5.0MG/ML UNKNOWN
     Route: 030
     Dates: start: 20191125
  9. MELATONIN [Suspect]
     Active Substance: MELATONIN
     Dosage: 6.0MG UNKNOWN
     Route: 065
  10. HALDOL [Suspect]
     Active Substance: HALOPERIDOL
     Indication: BIPOLAR I DISORDER
     Dosage: 5.0MG UNKNOWN
     Route: 030
     Dates: start: 20191126
  11. MOVICOL [Suspect]
     Active Substance: POLYETHYLENE GLYCOL 3350\POTASSIUM CHLORIDE\SODIUM BICARBONATE\SODIUM CHLORIDE
     Route: 065
  12. LITHIUM. [Suspect]
     Active Substance: LITHIUM
     Dosage: 42.0MG UNKNOWN
     Route: 065
  13. ESOMEPRAZOLE. [Suspect]
     Active Substance: ESOMEPRAZOLE MAGNESIUM
     Indication: PRODUCT USED FOR UNKNOWN INDICATION
     Dosage: 40.0MG UNKNOWN
     Route: 065
  14. OLODATEROL HYDROCHLORIDE [Suspect]
     Active Substance: OLODATEROL HYDROCHLORIDE
     Dosage: 2.5MG UNKNOWN
     Route: 065

REACTIONS (8)
  - Renal failure [Recovering/Resolving]
  - Akathisia [Recovering/Resolving]
  - Drug ineffective [Unknown]
  - Muscle rigidity [Recovering/Resolving]
  - Agitation [Recovering/Resolving]
  - Anxiety [Recovering/Resolving]
  - Urinary tract infection [Recovering/Resolving]
  - Body temperature increased [Recovering/Resolving]
